FAERS Safety Report 8360727-6 (Version None)
Quarter: 2012Q2

REPORT INFORMATION
  Report Type: 
  Country: None (occurrence: None)
  Receive Date: 20120515
  Receipt Date: 20120327
  Transmission Date: 20120825
  Serious: Yes (Death)
  Sender: FDA-Public Use
  Company Number: US-CELGENEUS-163-21880-12033099

PATIENT
  Sex: Male

DRUGS (9)
  1. KEPPRA [Concomitant]
     Route: 065
  2. PROTONIX [Concomitant]
     Route: 065
  3. LORTAB [Concomitant]
     Route: 065
  4. RENA-VITE [Concomitant]
     Route: 065
  5. RENVELA [Concomitant]
     Route: 065
  6. PRAVACHOL [Concomitant]
     Route: 065
  7. REVLIMID [Suspect]
     Indication: MYELODYSPLASTIC SYNDROME
     Dosage: 5 MILLIGRAM
     Route: 048
     Dates: start: 20120222
  8. ZINC SULFATE [Concomitant]
     Route: 065
  9. PHENOBARBITAL TAB [Concomitant]
     Route: 065

REACTIONS (1)
  - DEATH [None]
